FAERS Safety Report 11568466 (Version 1)
Quarter: 2015Q3

REPORT INFORMATION
  Report Type: Spontaneous
  Country: US (occurrence: None)
  Receive Date: 20150925
  Receipt Date: 20150925
  Transmission Date: 20151125
  Serious: Yes (Hospitalization, Other)
  Sender: FDA-Public Use
  Company Number: US-ZYDUS-009091

PATIENT
  Age: 49 Year
  Sex: Male

DRUGS (2)
  1. STEROID [Suspect]
     Active Substance: UNSPECIFIED INGREDIENT
     Indication: PRODUCT USED FOR UNKNOWN INDICATION
  2. AZATHIOPRINE. [Suspect]
     Active Substance: AZATHIOPRINE
     Indication: PRODUCT USED FOR UNKNOWN INDICATION

REACTIONS (10)
  - Joint swelling [None]
  - Oedema peripheral [None]
  - Extradural abscess [None]
  - Anaemia [None]
  - Leukopenia [None]
  - Neutropenia [None]
  - Osteomyelitis [None]
  - Spinal fracture [None]
  - Spinal cord compression [None]
  - Fall [None]
